FAERS Safety Report 5994975-7 (Version None)
Quarter: 2008Q4

REPORT INFORMATION
  Report Type: 
  Country: None (occurrence: None)
  Receive Date: 20081212
  Receipt Date: 20081208
  Transmission Date: 20090506
  Serious: Yes (Death)
  Sender: FDA-Public Use
  Company Number: US-CELGENEUS-163-21880-08040780

PATIENT
  Sex: Male

DRUGS (3)
  1. REVLIMID [Suspect]
     Route: 048
     Dates: start: 20080409, end: 20080101
  2. REVLIMID [Suspect]
     Route: 048
     Dates: start: 20071123, end: 20080401
  3. REVLIMID [Suspect]
     Dosage: 5MG-25MG
     Route: 048
     Dates: start: 20060707, end: 20060801

REACTIONS (2)
  - DEATH [None]
  - PLATELET COUNT DECREASED [None]
